FAERS Safety Report 6160508-8 (Version None)
Quarter: 2009Q2

REPORT INFORMATION
  Report Type: 
  Country: None (occurrence: None)
  Receive Date: 20090415
  Receipt Date: 20090415
  Transmission Date: 20091009
  Serious: Yes (Other)
  Sender: FDA-Public Use
  Company Number: None

PATIENT
  Age: 58 Year
  Sex: Male
  Weight: 151.955 kg

DRUGS (1)
  1. SULINDAC [Suspect]
     Indication: ARTHRALGIA
     Dosage: 200MG 2 X DAY PO
     Route: 048
     Dates: start: 20090326, end: 20090412

REACTIONS (4)
  - CONSTIPATION [None]
  - FAECES HARD [None]
  - PAIN [None]
  - PRESYNCOPE [None]
